FAERS Safety Report 9246786 (Version 1)
Quarter: 2013Q2

REPORT INFORMATION
  Report Type: Spontaneous
  Country: BE (occurrence: BE)
  Receive Date: 20130422
  Receipt Date: 20130422
  Transmission Date: 20140414
  Serious: Yes (Death)
  Sender: FDA-Public Use
  Company Number: BE-BAXTER-2013BAX014014

PATIENT
  Age: 77 Year
  Sex: Male

DRUGS (2)
  1. DIANEAL PD4 GLUCOSE 1,36 % / 13,6 MG/ML [Suspect]
     Indication: RENAL FAILURE
     Route: 033
     Dates: end: 20130327
  2. EXTRANEAL [Suspect]
     Indication: RENAL FAILURE
     Route: 033
     Dates: end: 20130327

REACTIONS (2)
  - Cardiac failure [Fatal]
  - Refusal of treatment by patient [Fatal]
